FAERS Safety Report 5654776-6 (Version None)
Quarter: 2008Q1

REPORT INFORMATION
  Report Type: 
  Country: None (occurrence: None)
  Receive Date: 20080307
  Receipt Date: 20071022
  Transmission Date: 20080703
  Serious: No
  Sender: FDA-Public Use
  Company Number: A0656617A

PATIENT
  Age: 68 Year
  Sex: Female

DRUGS (8)
  1. REQUIP [Suspect]
     Indication: RESTLESS LEGS SYNDROME
     Dosage: 1MG PER DAY
     Route: 048
     Dates: start: 20070423
  2. OMEPRAZOLE [Concomitant]
  3. NASACORT [Concomitant]
  4. VITAMINS + MINERALS [Concomitant]
  5. GLUCOSAMINE [Concomitant]
  6. CALCIUM [Concomitant]
  7. CLONAZEPAM [Concomitant]
  8. SOMA [Concomitant]

REACTIONS (3)
  - FEELING ABNORMAL [None]
  - ILL-DEFINED DISORDER [None]
  - RESTLESSNESS [None]
